FAERS Safety Report 9722119 (Version 1)
Quarter: 2013Q4

REPORT INFORMATION
  Report Type: Spontaneous
  Country: US (occurrence: US)
  Receive Date: 20131202
  Receipt Date: 20131202
  Transmission Date: 20140711
  Serious: Yes (Hospitalization)
  Sender: FDA-Public Use
  Company Number: US-BIOGENIDEC-2013BI113146

PATIENT
  Age: 39 Year
  Sex: Female

DRUGS (6)
  1. TECFIDERA [Suspect]
     Indication: MULTIPLE SCLEROSIS
     Route: 048
     Dates: start: 20131018
  2. SINGULAIR [Concomitant]
  3. ZOLOFT [Concomitant]
  4. METHOCARBAMOL [Concomitant]
  5. VICOPROFEN [Concomitant]
  6. ADVAIR [Concomitant]

REACTIONS (1)
  - Back pain [Unknown]
